FAERS Safety Report 9563732 (Version 1)
Quarter: 2013Q3

REPORT INFORMATION
  Report Type: Spontaneous
  Country: IT (occurrence: None)
  Receive Date: 20130926
  Receipt Date: 20130926
  Transmission Date: 20140515
  Serious: No
  Sender: FDA-Public Use
  Company Number: 1309IT004331

PATIENT
  Age: 2 Year
  Sex: Male
  Weight: 15 kg

DRUGS (3)
  1. CEDAX [Suspect]
     Indication: PHARYNGITIS
     Dosage: 3 ML, DAILY, 1 DOSE UNIT
     Route: 048
     Dates: start: 20130412, end: 20130413
  2. ACETAMINOPHEN [Concomitant]
  3. LACTOBACILLUS RHAMNOSUS [Concomitant]

REACTIONS (1)
  - Psychotic disorder [None]
